FAERS Safety Report 23702172 (Version 1)
Quarter: 2024Q2

REPORT INFORMATION
  Report Type: Spontaneous
  Country: US (occurrence: None)
  Receive Date: 20240403
  Receipt Date: 20240403
  Transmission Date: 20240716
  Serious: Yes (Life-Threatening, Hospitalization, Disabling, Other)
  Sender: FDA-Public Use
  Company Number: None

PATIENT
  Age: 48 Year
  Sex: Male
  Weight: 85.5 kg

DRUGS (2)
  1. VENLAFAXINE HCL [Suspect]
     Active Substance: VENLAFAXINE HYDROCHLORIDE
     Indication: Product used for unknown indication
     Dosage: 1 CAPSULE DAILY ORAL
     Route: 048
     Dates: start: 20231214, end: 20240306
  2. SUN VALLEY IRON SUPPLEMENT [Concomitant]

REACTIONS (9)
  - Therapy interrupted [None]
  - Sleep apnoea syndrome [None]
  - Muscle spasms [None]
  - Muscle twitching [None]
  - Stress [None]
  - Tremor [None]
  - Gait disturbance [None]
  - Tremor [None]
  - Head titubation [None]

NARRATIVE: CASE EVENT DATE: 20240306
